FAERS Safety Report 25856058 (Version 1)
Quarter: 2025Q3

REPORT INFORMATION
  Report Type: Report from Study
  Country: US (occurrence: US)
  Receive Date: 20250928
  Receipt Date: 20250928
  Transmission Date: 20251020
  Serious: Yes (Death, Hospitalization, Other)
  Sender: ACADIA PHARMACEUTICALS
  Company Number: US-ACADIA PHARMACEUTICALS INC.-ACA-2025-PIM-010590

PATIENT
  Age: 71 Year
  Sex: Male

DRUGS (27)
  1. NUPLAZID [Suspect]
     Active Substance: PIMAVANSERIN TARTRATE
     Indication: Parkinson^s disease
     Dosage: 34 MILLIGRAM, QD
     Route: 065
     Dates: start: 20240925, end: 20250913
  2. NUPLAZID [Suspect]
     Active Substance: PIMAVANSERIN TARTRATE
     Indication: Hallucination
  3. NUPLAZID [Suspect]
     Active Substance: PIMAVANSERIN TARTRATE
     Indication: Delusion
  4. NUPLAZID [Suspect]
     Active Substance: PIMAVANSERIN TARTRATE
     Indication: Product used for unknown indication
     Dosage: 2 TABS, ORAL DAILY
     Route: 048
  5. ALCLOMETASONE [Concomitant]
     Active Substance: ALCLOMETASONE
     Dosage: 1 APP,
     Route: 061
  6. VITAMIN C [Concomitant]
     Active Substance: ASCORBIC ACID
     Dosage: 500 MG - 1 TAB(S), TAB, ORAL, DAILY
     Route: 048
  7. ASPIRIN [Concomitant]
     Active Substance: ASPIRIN
     Dosage: 81 MG - 1 TAB(S), TAB, ORAL, DAILY
     Route: 048
  8. ATROPINE [Concomitant]
     Active Substance: ATROPINE
     Indication: Drooling
     Dosage: 1-2 DROPS UNDER THE TONGUE TWICE DAILY AS NEEDED FOR DROOLING
  9. CARBIDOPA\LEVODOPA [Concomitant]
     Active Substance: CARBIDOPA\LEVODOPA
     Dosage: 1 TAB(S), ORAL, NIGHTLY (BEDTIME)
     Route: 048
  10. CARBIDOPA\LEVODOPA [Concomitant]
     Active Substance: CARBIDOPA\LEVODOPA
     Dosage: 1.5 TAB(S), TAB, ORAL, TID WHILE AWAKE
     Route: 048
  11. CYANOCOBALAMIN [Concomitant]
     Active Substance: CYANOCOBALAMIN
  12. DICYCLOMINE [Concomitant]
     Active Substance: DICYCLOMINE HYDROCHLORIDE
     Route: 048
  13. DONEPEZIL [Concomitant]
     Active Substance: DONEPEZIL
     Dosage: 10 MG - 1 TAB(S), ORAL, DAILY
     Route: 048
  14. DROXIDOPA [Interacting]
     Active Substance: DROXIDOPA
     Dosage: 200 MG, ONE CAPSULE (ALONG WITH ONE 300 MG CAPSULE) MIDDAY, 300 MG QPM
     Route: 048
  15. DROXIDOPA [Interacting]
     Active Substance: DROXIDOPA
     Dosage: TAKE TWO CAPSULES QAM, ONE CAPSULE (ALONG WITH ONE 200MG CAPSULE) MIDDAY, AND ONE CAPSULE ORAL QPM
     Route: 048
  16. FLUDROCORTISONE [Concomitant]
     Active Substance: FLUDROCORTISONE
     Dosage: 0.2 MG - 2 TAB(S), TAB, ORAL, DAILY, START WITH 1 IN THE MORNING AND IF BP IS LOW IN THE AFTERNOON C
     Route: 048
  17. FOLIC ACID [Concomitant]
     Active Substance: FOLIC ACID
     Dosage: TAKE 1 TABLET BY MOUTH DAILY
     Route: 048
  18. COSAMIN DS [CHONDROITIN SULFATE SODIUM;GLUCOSAMINE HYDROCHLORIDE;MANGA [Concomitant]
     Dosage: 1 TAB(S), ORAL, BID
     Route: 048
  19. ACETAMINOPHEN\HYDROCODONE [Concomitant]
     Active Substance: ACETAMINOPHEN\HYDROCODONE
     Indication: Pain
  20. ALBUTEROL\IPRATROPIUM [Concomitant]
     Active Substance: ALBUTEROL\IPRATROPIUM
     Indication: Wheezing
  21. ALBUTEROL\IPRATROPIUM [Concomitant]
     Active Substance: ALBUTEROL\IPRATROPIUM
     Indication: Dyspnoea
  22. MIDODRINE [Concomitant]
     Active Substance: MIDODRINE
     Dosage: 10 MG - 2 TAB(S), TAB, ORAL, TID WHILE AWAKE
     Route: 048
  23. MIRALAX [Concomitant]
     Active Substance: POLYETHYLENE GLYCOL 3350
     Dosage: 17 GM, ORAL, NIGHTLY (BEDTIME)
     Route: 048
  24. PRAVASTATIN [Concomitant]
     Active Substance: PRAVASTATIN
     Dosage: 80 MG - 1 TAB(S), TAB, ORAL, DAILY
     Route: 048
  25. QUETIAPINE [Concomitant]
     Active Substance: QUETIAPINE
     Dosage: 50 MG - 1 TAB(S), TAB, ORAL, NIGHTLY (BEDTIME)
     Route: 048
  26. SENNOSIDES [Concomitant]
     Active Substance: SENNOSIDES
     Indication: Constipation
     Dosage: 8.6 MG - 1 TAB(S), TAB, ORAL, NIGHTLY (BEDTIME)
     Route: 048
  27. TRIAMCINOLONE [Concomitant]
     Active Substance: TRIAMCINOLONE
     Indication: Skin irritation
     Route: 061

REACTIONS (7)
  - Death [Fatal]
  - Intestinal pseudo-obstruction [Recovered/Resolved]
  - Cardiomyopathy [Recovered/Resolved]
  - Chronic kidney disease [Recovered/Resolved]
  - Obstructive sleep apnoea syndrome [Recovered/Resolved]
  - Osteoarthritis [Recovered/Resolved]
  - Electrocardiogram QT prolonged [Recovered/Resolved]

NARRATIVE: CASE EVENT DATE: 20250913
